FAERS Safety Report 7707106-X (Version None)
Quarter: 2011Q3

REPORT INFORMATION
  Report Type: 
  Country: None (occurrence: None)
  Receive Date: 20110824
  Receipt Date: 20110818
  Transmission Date: 20111222
  Serious: Yes (Other)
  Sender: FDA-Public Use
  Company Number: US-PFIZER INC-2006030618

PATIENT
  Sex: Male

DRUGS (10)
  1. PANLOR DC [Concomitant]
  2. FUROSEMIDE [Concomitant]
  3. GABAPENTIN [Suspect]
     Indication: NERVE INJURY
  4. ACETAMINOPHEN AND OXYCODONE HCL [Concomitant]
     Dosage: 325/5MG
  5. HYDROXYZINE [Concomitant]
  6. LEXAPRO [Concomitant]
  7. LORAZEPAM [Concomitant]
  8. METHOCARBAMOL [Concomitant]
  9. ACETAMINOPHEN AND HYDROCODONE BITARTRATE [Concomitant]
     Dosage: 7.5/500MG
  10. IBUPROFEN [Concomitant]

REACTIONS (4)
  - SUICIDE ATTEMPT [None]
  - ANXIETY [None]
  - DRUG INEFFECTIVE [None]
  - DEPRESSION [None]
